FAERS Safety Report 5195902-5 (Version None)
Quarter: 2007Q1

REPORT INFORMATION
  Report Type: 
  Country: None (occurrence: None)
  Receive Date: 20070102
  Receipt Date: 20061221
  Transmission Date: 20070707
  Serious: Yes (Hospitalization)
  Sender: FDA-Public Use
  Company Number: US-SANOFI-SYNTHELABO-A03200607637

PATIENT
  Sex: Female

DRUGS (4)
  1. HEPARIN [Concomitant]
     Dosage: UNK
     Route: 042
  2. CLINDAMYCIN [Concomitant]
     Dosage: UNK
     Route: 042
  3. PLAVIX [Suspect]
     Indication: DRUG USE FOR UNKNOWN INDICATION
     Route: 048
     Dates: start: 20061219, end: 20061220
  4. ASPIRIN [Concomitant]
     Dosage: UNK
     Route: 048

REACTIONS (3)
  - CARDIAC TAMPONADE [None]
  - HAEMORRHAGE [None]
  - HAEMORRHAGE INTRACRANIAL [None]
